FAERS Safety Report 12763729 (Version 1)
Quarter: 2016Q3

REPORT INFORMATION
  Report Type: Spontaneous
  Country: JP (occurrence: JP)
  Receive Date: 20160920
  Receipt Date: 20160920
  Transmission Date: 20161109
  Serious: Yes (Other)
  Sender: FDA-Public Use
  Company Number: JP-ELI_LILLY_AND_COMPANY-JP201609006678

PATIENT
  Age: 78 Year
  Sex: Male

DRUGS (2)
  1. PACLITAXEL. [Concomitant]
     Active Substance: PACLITAXEL
     Indication: GASTRIC CANCER
     Route: 042
  2. CYRAMZA [Suspect]
     Active Substance: RAMUCIRUMAB
     Indication: GASTRIC CANCER
     Route: 042

REACTIONS (2)
  - Blood creatinine increased [Unknown]
  - Creatinine renal clearance decreased [Unknown]

NARRATIVE: CASE EVENT DATE: 20160916
